FAERS Safety Report 8972070 (Version 1)
Quarter: 2012Q4

REPORT INFORMATION
  Report Type: 
  Country: US (occurrence: US)
  Receive Date: 20121218
  Receipt Date: 20121218
  Transmission Date: 20130627
  Serious: Yes (Other)
  Sender: FDA-Public Use
  Company Number: US-JNJFOC-20121206781

PATIENT
  Age: 61 Year
  Sex: Female
  Weight: 58.97 kg

DRUGS (2)
  1. NEOSPORIN [Suspect]
     Indication: SKIN DISORDER
     Dosage: amount of tip of an eraser
     Route: 061
     Dates: start: 20020815, end: 20020816
  2. VITAMINS NOS [Concomitant]
     Route: 065

REACTIONS (3)
  - Neoplasm malignant [Unknown]
  - Application site rash [Recovered/Resolved]
  - Off label use [Unknown]
